FAERS Safety Report 5474685-5 (Version None)
Quarter: 2007Q4

REPORT INFORMATION
  Report Type: 
  Country: None (occurrence: None)
  Receive Date: 20071002
  Receipt Date: 20070920
  Transmission Date: 20080405
  Serious: Yes (Life-Threatening, Hospitalization, Other)
  Sender: FDA-Public Use
  Company Number: SEWYE346020SEP07

PATIENT
  Sex: Male

DRUGS (8)
  1. PIPERACILLIN AND TAZOBACTAM [Suspect]
     Indication: INFECTION
     Route: 042
     Dates: start: 20070823, end: 20070904
  2. CLINDAMYCIN PHOSPHATE [Concomitant]
     Indication: INFECTION
     Route: 042
     Dates: start: 20070830
  3. KLEXANE [Concomitant]
     Indication: PROPHYLAXIS
     Route: 058
     Dates: start: 20070823
  4. FENTANYL [Concomitant]
     Indication: PAIN
     Dosage: UNSPESIFIED
     Route: 042
     Dates: start: 20070831
  5. PANTOPRAZOLE SODIUM [Concomitant]
     Indication: PROPHYLAXIS AGAINST GASTROINTESTINAL ULCER
     Route: 042
     Dates: start: 20070902
  6. OXYCODONE HYDROCHLORIDE [Concomitant]
     Indication: PAIN
     Dosage: BOLUS ON DEMAND
     Route: 042
     Dates: start: 20070830
  7. INSULIN ACTRAPID [Concomitant]
     Indication: BLOOD GLUCOSE ABNORMAL
     Route: 042
     Dates: start: 20070830
  8. FLUCONAZOLE [Concomitant]
     Indication: PROPHYLAXIS
     Route: 042
     Dates: start: 20070831

REACTIONS (3)
  - HEPATIC HAEMATOMA [None]
  - POST PROCEDURAL HAEMORRHAGE [None]
  - THROMBOCYTOPENIA [None]
